FAERS Safety Report 24714148 (Version 1)
Quarter: 2024Q4

REPORT INFORMATION
  Report Type: Spontaneous
  Country: US (occurrence: US)
  Receive Date: 20241209
  Receipt Date: 20241209
  Transmission Date: 20250115
  Serious: No
  Sender: REGENERON
  Company Number: US-REGENERON PHARMACEUTICALS, INC.-2024-142777

PATIENT
  Sex: Male

DRUGS (3)
  1. EYLEA [Suspect]
     Active Substance: AFLIBERCEPT
     Indication: Retinal vascular occlusion
     Dosage: EVERY MONTH FOR 4 INJECTIONS, FORMULATION: UNKNOWN
     Dates: start: 20230428, end: 2024
  2. EYLEA [Suspect]
     Active Substance: AFLIBERCEPT
     Dosage: EVERY TWO MONTHS FOR TWO INJECTIONS, FORMULATION: UNKNOWN
     Dates: start: 2024, end: 2024
  3. EYLEA [Suspect]
     Active Substance: AFLIBERCEPT
     Dosage: THREE MONTHS UNTIL THE SEVENTH INJECTION ONWARDS, FORMULATION: UNKNOWN
     Dates: start: 2024

REACTIONS (1)
  - Therapeutic response decreased [Unknown]

NARRATIVE: CASE EVENT DATE: 20240101
